FAERS Safety Report 9588017 (Version 2)
Quarter: 2013Q4

REPORT INFORMATION
  Report Type: Spontaneous
  Country: TW (occurrence: TW)
  Receive Date: 20131003
  Receipt Date: 20131003
  Transmission Date: 20140711
  Serious: Yes (Other)
  Sender: FDA-Public Use
  Company Number: PHHY2013TW067247

PATIENT
  Sex: Male

DRUGS (1)
  1. RITALIN [Suspect]
     Indication: DISTURBANCE IN ATTENTION
     Dosage: 10 DF, DAILY
     Route: 048

REACTIONS (4)
  - Paranoia [Recovering/Resolving]
  - Hallucination, auditory [Recovering/Resolving]
  - Overdose [Recovering/Resolving]
  - Illusion [Recovering/Resolving]
